FAERS Safety Report 17250556 (Version 1)
Quarter: 2020Q1

REPORT INFORMATION
  Report Type: Spontaneous
  Country: GB (occurrence: GB)
  Receive Date: 20200109
  Receipt Date: 20200109
  Transmission Date: 20200409
  Serious: Yes (Other)
  Sender: FDA-Public Use
  Company Number: GB-TEVA-2020-GB-1164177

PATIENT
  Age: 13 Year
  Sex: Female
  Weight: 53 kg

DRUGS (7)
  1. CLARITHROMYCIN. [Suspect]
     Active Substance: CLARITHROMYCIN
     Dosage: 250 MG
     Dates: start: 20191127
  2. CLENIL MODULITE [Concomitant]
     Active Substance: BECLOMETHASONE DIPROPIONATE
     Dosage: PUFFS (4 DOSAGE FORMS PER DAY)
     Dates: start: 20190520
  3. AMOXICILLIN. [Concomitant]
     Active Substance: AMOXICILLIN
     Dosage: 3 DOSAGE FORMS PER DAY
     Dates: start: 20190923, end: 20190928
  4. MEFENAMIC ACID. [Concomitant]
     Active Substance: MEFENAMIC ACID
     Dosage: 3 DOSAGE FORMS PER DAY
     Dates: start: 20191127, end: 20191206
  5. PREDNISOLONE. [Concomitant]
     Active Substance: PREDNISOLONE
     Dosage: 6 DOSAGE FORMS PER DAY
     Dates: start: 20190923, end: 20190926
  6. SALBUTAMOL [Concomitant]
     Active Substance: ALBUTEROL
     Dosage: PUFFS  (2 DOSAGE FORMS)
     Dates: start: 20190520
  7. MONTELUKAST [Concomitant]
     Active Substance: MONTELUKAST SODIUM
     Dosage: 1 DOSAGE FORMS PER DAY
     Dates: start: 20190520

REACTIONS (4)
  - Oedema [Recovered/Resolved]
  - Pruritus [Recovered/Resolved]
  - Periorbital swelling [Unknown]
  - Rash erythematous [Unknown]

NARRATIVE: CASE EVENT DATE: 20191206
